FAERS Safety Report 24729084 (Version 5)
Quarter: 2025Q2

REPORT INFORMATION
  Report Type: Spontaneous
  Country: US (occurrence: US)
  Receive Date: 20241213
  Receipt Date: 20250418
  Transmission Date: 20250716
  Serious: No
  Sender: ROCHE
  Company Number: US-ROCHE-10000152885

PATIENT
  Age: 74 Year
  Sex: Female
  Weight: 61.23 kg

DRUGS (6)
  1. ACTEMRA [Suspect]
     Active Substance: TOCILIZUMAB
     Indication: Rheumatoid arthritis
     Dosage: LAST USING THE ACTPEN ON 09-JAN-2025.
     Route: 058
     Dates: start: 20241031
  2. ACTEMRA [Suspect]
     Active Substance: TOCILIZUMAB
     Indication: Product used for unknown indication
     Dosage: HER LAST INFUSION WAS ON 21-MAR-2025.
     Route: 042
  3. LYRICA [Concomitant]
     Active Substance: PREGABALIN
     Indication: Neuralgia
  4. ARAVA [Concomitant]
     Active Substance: LEFLUNOMIDE
     Indication: Rheumatoid arthritis
  5. ELIQUIS [Concomitant]
     Active Substance: APIXABAN
  6. CRESTOR [Concomitant]
     Active Substance: ROSUVASTATIN CALCIUM
     Indication: Myalgia
     Dates: start: 202502

REACTIONS (4)
  - Device mechanical issue [Unknown]
  - Underdose [Unknown]
  - No adverse event [Unknown]
  - Device defective [Unknown]

NARRATIVE: CASE EVENT DATE: 20241128
